FAERS Safety Report 4765960-8 (Version None)
Quarter: 2005Q3

REPORT INFORMATION
  Report Type: 
  Country: None (occurrence: None)
  Receive Date: 20050906
  Receipt Date: 20050823
  Transmission Date: 20060218
  Serious: Yes (Disabling)
  Sender: FDA-Public Use
  Company Number: WAES 0508USA02960

PATIENT
  Age: 76 Year
  Sex: Female

DRUGS (3)
  1. COZAAR [Suspect]
     Indication: HYPERTENSION
     Dosage: 25 MG/DAILY PO; 50 MG/DAILY
     Route: 048
     Dates: start: 20011218, end: 20040126
  2. COZAAR [Suspect]
     Indication: HYPERTENSION
     Dosage: 25 MG/DAILY PO; 50 MG/DAILY
     Route: 048
     Dates: start: 20040127
  3. NIVADIL [Concomitant]

REACTIONS (3)
  - ATRIAL FIBRILLATION [None]
  - SICK SINUS SYNDROME [None]
  - SINUS ARREST [None]
